FAERS Safety Report 17610577 (Version 1)
Quarter: 2020Q2

REPORT INFORMATION
  Report Type: Spontaneous
  Country: IT (occurrence: IT)
  Receive Date: 20200401
  Receipt Date: 20200401
  Transmission Date: 20200713
  Serious: Yes (Hospitalization)
  Sender: FDA-Public Use
  Company Number: IT-STRIDES ARCOLAB LIMITED-2020SP004142

PATIENT
  Age: 46 Year
  Sex: Male

DRUGS (6)
  1. CYCLOSPORINE. [Suspect]
     Active Substance: CYCLOSPORINE
     Indication: IMMUNOSUPPRESSANT DRUG THERAPY
     Dosage: 8 MG/KG/DAY
     Route: 065
  2. MYCOPHENOLATE MOFETIL. [Suspect]
     Active Substance: MYCOPHENOLATE MOFETIL
     Indication: LIVER TRANSPLANT
  3. CYCLOSPORINE. [Suspect]
     Active Substance: CYCLOSPORINE
     Indication: LIVER TRANSPLANT
  4. MYCOPHENOLATE MOFETIL. [Suspect]
     Active Substance: MYCOPHENOLATE MOFETIL
     Indication: IMMUNOSUPPRESSANT DRUG THERAPY
     Dosage: UNK
     Route: 065
  5. PREDNISOLONE. [Suspect]
     Active Substance: PREDNISOLONE
     Indication: LIVER TRANSPLANT
  6. PREDNISOLONE. [Suspect]
     Active Substance: PREDNISOLONE
     Indication: IMMUNOSUPPRESSANT DRUG THERAPY
     Dosage: UNK
     Route: 065

REACTIONS (17)
  - Oculogyric crisis [Recovered/Resolved]
  - Hyperreflexia [Unknown]
  - Confusional state [Unknown]
  - Akinesia [Recovered/Resolved]
  - Myoclonus [Recovered/Resolved]
  - Gaze palsy [Recovered/Resolved]
  - Unresponsive to stimuli [Recovered/Resolved]
  - Dyskinesia [Recovered/Resolved]
  - Dysarthria [Unknown]
  - Dysprosody [Unknown]
  - Locked-in syndrome [Recovered/Resolved]
  - Mutism [Recovered/Resolved]
  - Vasogenic cerebral oedema [Recovered/Resolved]
  - Psychomotor hyperactivity [Unknown]
  - Clonus [Unknown]
  - Altered state of consciousness [Recovered/Resolved]
  - Encephalopathy [Recovered/Resolved]
